FAERS Safety Report 12992082 (Version 1)
Quarter: 2016Q4

REPORT INFORMATION
  Report Type: Spontaneous
  Country: US (occurrence: US)
  Receive Date: 20161201
  Receipt Date: 20161201
  Transmission Date: 20170207
  Serious: Yes (Other)
  Sender: FDA-Public Use
  Company Number: US-ASTRAZENECA-2016SF25581

PATIENT
  Age: 30 Year
  Sex: Male

DRUGS (10)
  1. OMEPRAZOLE. [Interacting]
     Active Substance: OMEPRAZOLE
     Indication: DIZZINESS
     Route: 048
  2. DOMPERIDONE [Interacting]
     Active Substance: DOMPERIDONE
     Route: 065
  3. PRIMAQUINE [Concomitant]
     Active Substance: PRIMAQUINE PHOSPHATE
     Indication: MALARIA
  4. OMEPRAZOLE. [Suspect]
     Active Substance: OMEPRAZOLE
     Indication: DIPLOPIA
     Route: 048
  5. CHLORDIAZEPOXIDE-CLIDINIUM BROMIDE [Interacting]
     Active Substance: CHLORDIAZEPOXIDE HYDROCHLORIDE\CLIDINIUM BROMIDE
     Route: 065
  6. MEFLOQUINE [Interacting]
     Active Substance: MEFLOQUINE
     Indication: MALARIA
     Dosage: 1500 MG IN THREE DIVIDED DOSES OVER 24 HOURS.
     Route: 065
  7. CHLOROQUINE. [Concomitant]
     Active Substance: CHLOROQUINE
     Indication: MALARIA
     Dosage: 2500 MG OVER 3 DAYS
  8. OMEPRAZOLE. [Interacting]
     Active Substance: OMEPRAZOLE
     Indication: VISION BLURRED
     Route: 048
  9. OMEPRAZOLE. [Interacting]
     Active Substance: OMEPRAZOLE
     Indication: NAUSEA
     Route: 048
  10. OMEPRAZOLE. [Interacting]
     Active Substance: OMEPRAZOLE
     Indication: VOMITING
     Route: 048

REACTIONS (4)
  - Drug interaction [Unknown]
  - Chorioretinopathy [Recovering/Resolving]
  - Off label use [Unknown]
  - Product use issue [Unknown]
